FAERS Safety Report 16468276 (Version 2)
Quarter: 2019Q3

REPORT INFORMATION
  Report Type: Spontaneous
  Country: US (occurrence: US)
  Receive Date: 20190624
  Receipt Date: 20190806
  Transmission Date: 20191004
  Serious: No
  Sender: FDA-Public Use
  Company Number: US-BAYER-2019-119264

PATIENT
  Age: 69 Year
  Sex: Female
  Weight: 33 kg

DRUGS (2)
  1. MIRALAX [Suspect]
     Active Substance: POLYETHYLENE GLYCOL 3350
     Indication: RECTAL PROLAPSE
  2. MIRALAX [Suspect]
     Active Substance: POLYETHYLENE GLYCOL 3350
     Indication: PROPHYLAXIS
     Dosage: 0.75 DF, QD
     Route: 048

REACTIONS (6)
  - Faeces discoloured [Unknown]
  - Abnormal faeces [Unknown]
  - Product odour abnormal [None]
  - Product taste abnormal [None]
  - Off label use [None]
  - Product use in unapproved indication [Unknown]
